FAERS Safety Report 7996261-2 (Version None)
Quarter: 2011Q4

REPORT INFORMATION
  Report Type: 
  Country: None (occurrence: None)
  Receive Date: 20111220
  Receipt Date: 20111214
  Transmission Date: 20120403
  Serious: Yes (Other)
  Sender: FDA-Public Use
  Company Number: GB-TEVA-308600ISR

PATIENT
  Age: 52 Year
  Sex: Male
  Weight: 124 kg

DRUGS (3)
  1. PIROXICAM [Concomitant]
     Dates: start: 20110929, end: 20111027
  2. DICLOFENAC SODIUM [Suspect]
     Indication: PAIN
     Dosage: 150 MILLIGRAM;
     Dates: start: 20110908
  3. DICLOFENAC SODIUM [Suspect]
     Dosage: 150 MILLIGRAM;
     Dates: start: 20111101

REACTIONS (2)
  - DISINHIBITION [None]
  - ANTISOCIAL BEHAVIOUR [None]
